FAERS Safety Report 23738550 (Version 4)
Quarter: 2024Q2

REPORT INFORMATION
  Report Type: Spontaneous
  Country: ES (occurrence: None)
  Receive Date: 20240412
  Receipt Date: 20240424
  Transmission Date: 20240715
  Serious: Yes (Other)
  Sender: FDA-Public Use
  Company Number: 2024A070740

PATIENT
  Sex: Female

DRUGS (1)
  1. BUDESONIDE\FORMOTEROL\GLYCOPYRRONIUM [Suspect]
     Active Substance: BUDESONIDE\FORMOTEROL\GLYCOPYRRONIUM
     Dosage: 5 ?G/7.2 ?G/160 ?G
     Route: 055

REACTIONS (7)
  - Asphyxia [Unknown]
  - Malaise [Unknown]
  - Dyspnoea [Unknown]
  - Drug dose omission by device [Recovered/Resolved]
  - Product use issue [Recovered/Resolved]
  - Device delivery system issue [Unknown]
  - Device defective [Unknown]
